FAERS Safety Report 7851308 (Version 2)
Quarter: 2013Q4

REPORT INFORMATION
  Report Type: Report from Study
  Country: US (occurrence: US)
  Receive Date: 20110310
  Receipt Date: 20131204
  Transmission Date: 20140711
  Serious: Yes (Hospitalization)
  Sender: FDA-Public Use
  Company Number: PHHO2010US14309

PATIENT
  Age: 57 Year
  Sex: Male
  Weight: 153.3 kg

DRUGS (5)
  1. ACZ885 [Suspect]
     Indication: TYPE 2 DIABETES MELLITUS
     Dosage: 50 MG, UNK
     Route: 042
     Dates: start: 20100511
  2. ANAESTHETICS [Suspect]
  3. METFORMIN [Concomitant]
  4. BENICAR HCT [Concomitant]
  5. CALAN - SLOW RELEASE [Concomitant]

REACTIONS (9)
  - Condition aggravated [Unknown]
  - Renal failure acute [Recovered/Resolved]
  - Hypoperfusion [Unknown]
  - Cholecystitis acute [Recovered/Resolved]
  - Cholelithiasis [Unknown]
  - Pyrexia [Unknown]
  - Abdominal pain upper [Not Recovered/Not Resolved]
  - Bile duct stenosis [Unknown]
  - Concomitant disease progression [Recovered/Resolved]
